FAERS Safety Report 8205203-6 (Version None)
Quarter: 2012Q1

REPORT INFORMATION
  Report Type: 
  Country: None (occurrence: None)
  Receive Date: 20120313
  Receipt Date: 20120309
  Transmission Date: 20120608
  Serious: Yes (Death)
  Sender: FDA-Public Use
  Company Number: TN-SANOFI-AVENTIS-2012SA015982

PATIENT
  Age: 82 Year
  Sex: Male

DRUGS (6)
  1. PLAVIX [Suspect]
     Route: 065
     Dates: start: 20120201, end: 20120223
  2. LOPRIL /FRA/ [Concomitant]
     Dates: end: 20120223
  3. ATORVASTATIN [Concomitant]
     Dates: end: 20120223
  4. PLAVIX [Suspect]
     Indication: STENT PLACEMENT
     Route: 065
     Dates: start: 20120201, end: 20120223
  5. ASPEGIC 1000 [Concomitant]
     Dates: end: 20120223
  6. DILACOR XR [Concomitant]
     Dates: end: 20120223

REACTIONS (1)
  - ABDOMINAL PAIN [None]
